FAERS Safety Report 14305556 (Version 1)
Quarter: 2017Q4

REPORT INFORMATION
  Report Type: Spontaneous
  Country: IT (occurrence: IT)
  Receive Date: 20171219
  Receipt Date: 20171219
  Transmission Date: 20180321
  Serious: Yes (Death)
  Sender: FDA-Public Use
  Company Number: IT-OTSUKA-DJ20070408

PATIENT
  Sex: Female

DRUGS (2)
  1. TACHIPIRINA [Suspect]
     Active Substance: ACETAMINOPHEN
     Indication: PRODUCT USED FOR UNKNOWN INDICATION
     Dosage: UNK
     Route: 065
  2. ABILIFY [Suspect]
     Active Substance: ARIPIPRAZOLE
     Indication: PRODUCT USED FOR UNKNOWN INDICATION
     Dosage: 10 MG, UNK
     Route: 048
     Dates: start: 20070206

REACTIONS (8)
  - Viral myocarditis [Fatal]
  - Pulmonary infarction [Fatal]
  - Diarrhoea [Fatal]
  - Hypotension [Fatal]
  - Vomiting [Fatal]
  - Pyrexia [Fatal]
  - Hyperglycaemia [Fatal]
  - Influenza [Fatal]

NARRATIVE: CASE EVENT DATE: 200702
